FAERS Safety Report 4989722-1 (Version None)
Quarter: 2006Q2

REPORT INFORMATION
  Report Type: 
  Country: None (occurrence: None)
  Receive Date: 20060501
  Receipt Date: 20060418
  Transmission Date: 20061013
  Serious: Yes (Death, Hospitalization)
  Sender: FDA-Public Use
  Company Number: 192393

PATIENT
  Age: 56 Year
  Sex: Female

DRUGS (2)
  1. AVONEX [Suspect]
     Indication: MULTIPLE SCLEROSIS
     Dosage: 30 UG; QW; IM
     Route: 030
     Dates: start: 20010516, end: 20030826
  2. AVONEX [Suspect]
     Indication: MULTIPLE SCLEROSIS
     Dosage: 30 UG; QW; IM
     Route: 030
     Dates: start: 20030827, end: 20040211

REACTIONS (7)
  - BACK INJURY [None]
  - EXTRADURAL ABSCESS [None]
  - FALL [None]
  - HAEMATOMA [None]
  - INTERVERTEBRAL DISC PROTRUSION [None]
  - PULMONARY EMBOLISM [None]
  - STAPHYLOCOCCAL SEPSIS [None]
